FAERS Safety Report 4423775-4 (Version None)
Quarter: 2004Q3

REPORT INFORMATION
  Report Type: 
  Country: None (occurrence: None)
  Receive Date: 20040719
  Receipt Date: 20040427
  Transmission Date: 20050211
  Serious: No
  Sender: FDA-Public Use
  Company Number: A03200401340

PATIENT
  Sex: Male

DRUGS (3)
  1. UROXATRAL [Suspect]
     Indication: DRUG USE FOR UNKNOWN INDICATION
     Dosage: NI UNK; ORAL
     Route: 048
  2. DUTASTERIDE - UNKNOWN - UNIT DOSE: UNKNOWN [Suspect]
     Indication: DRUG USE FOR UNKNOWN INDICATION
     Dosage: NI UNK; UNKNOWN
     Route: 065
  3. LEVOFLOXACIN [Concomitant]

REACTIONS (1)
  - HEADACHE [None]
